FAERS Safety Report 8531030-6 (Version None)
Quarter: 2012Q3

REPORT INFORMATION
  Report Type: 
  Country: None (occurrence: None)
  Receive Date: 20120710
  Receipt Date: 20120629
  Transmission Date: 20120928
  Serious: Yes (Death, Hospitalization, Other)
  Sender: FDA-Public Use
  Company Number: 2012P1042485

PATIENT
  Age: 67 Year
  Sex: Male
  Weight: 80.7403 kg

DRUGS (11)
  1. DIGOXIN [Concomitant]
  2. FISH OIL [Concomitant]
  3. HEPARIN [Suspect]
     Dates: start: 20111201
  4. CHOLECLACIFEROL [Concomitant]
  5. SYNTHROID [Concomitant]
  6. METFORMIN HYDROCHLORIDE [Concomitant]
  7. PERCOCET [Concomitant]
  8. AMLODIPINE [Concomitant]
  9. NEURONTIN [Concomitant]
  10. ZANTAC [Concomitant]
  11. ZOLOFT [Concomitant]

REACTIONS (17)
  - TRANSIENT ISCHAEMIC ATTACK [None]
  - ANAEMIA [None]
  - RESPIRATORY DISTRESS [None]
  - HYPONATRAEMIA [None]
  - INSOMNIA [None]
  - FAILURE TO THRIVE [None]
  - PERIPHERAL ARTERIAL OCCLUSIVE DISEASE [None]
  - HEPARIN-INDUCED THROMBOCYTOPENIA [None]
  - GANGRENE [None]
  - COUGH [None]
  - CHOKING [None]
  - VASOCONSTRICTION [None]
  - MALNUTRITION [None]
  - CONFUSIONAL STATE [None]
  - PERIPHERAL ISCHAEMIA [None]
  - PNEUMONIA [None]
  - HAEMATURIA [None]
